FAERS Safety Report 7014901-1 (Version None)
Quarter: 2010Q3

REPORT INFORMATION
  Report Type: 
  Country: None (occurrence: None)
  Receive Date: 20100927
  Receipt Date: 20100115
  Transmission Date: 20110219
  Serious: No
  Sender: FDA-Public Use
  Company Number: US-ASTRAZENECA-2009SE16333

PATIENT
  Age: 66 Year
  Sex: Male
  Weight: 72.6 kg

DRUGS (1)
  1. ARIMIDEX [Suspect]
     Route: 048
     Dates: end: 20090901

REACTIONS (7)
  - BURNING SENSATION [None]
  - CARPAL TUNNEL SYNDROME [None]
  - HYPOAESTHESIA [None]
  - INFLAMMATION [None]
  - JOINT SWELLING [None]
  - MUSCLE SPASMS [None]
  - PAIN IN EXTREMITY [None]
